FAERS Safety Report 8805847 (Version 1)
Quarter: 2012Q4

REPORT INFORMATION
  Report Type: Spontaneous
  Country: US (occurrence: None)
  Receive Date: 20120919
  Receipt Date: 20120919
  Transmission Date: 20130627
  Serious: Yes (Other)
  Sender: FDA-Public Use
  Company Number: None

PATIENT

DRUGS (1)
  1. LEVOFLOXACIN [Suspect]
     Indication: SINUS INFECTION
     Dosage: 2 pills   one daily   po
     Dates: start: 20110909, end: 20110910

REACTIONS (20)
  - Feeling abnormal [None]
  - Asthenia [None]
  - Nervousness [None]
  - Dizziness [None]
  - Balance disorder [None]
  - Feeling abnormal [None]
  - Abnormal dreams [None]
  - Insomnia [None]
  - Paraesthesia [None]
  - Paraesthesia [None]
  - Chest discomfort [None]
  - Dyspnoea [None]
  - Muscle spasms [None]
  - Loss of control of legs [None]
  - Suicidal ideation [None]
  - Feeling abnormal [None]
  - Fatigue [None]
  - Depression [None]
  - Palpitations [None]
  - Economic problem [None]
